FAERS Safety Report 6673451-2 (Version None)
Quarter: 2010Q1

REPORT INFORMATION
  Report Type: 
  Country: None (occurrence: None)
  Receive Date: 20100329
  Receipt Date: 20090909
  Transmission Date: 20100710
  Serious: Yes (Other)
  Sender: FDA-Public Use
  Company Number: 2009270964

PATIENT
  Age: 46 Year
  Sex: Female
  Weight: 54.4 kg

DRUGS (3)
  1. GEODON [Suspect]
     Indication: BIPOLAR DISORDER
     Dosage: 80 MG, 1X/DAY
     Dates: start: 20090801
  2. PROZAC [Suspect]
     Indication: DEPRESSION
     Dates: end: 20090101
  3. LUNESTA [Concomitant]

REACTIONS (7)
  - DEHYDRATION [None]
  - DRUG EFFECT INCREASED [None]
  - DYSKINESIA [None]
  - HEART RATE IRREGULAR [None]
  - LETHARGY [None]
  - MUSCLE DISORDER [None]
  - TREMOR [None]
